FAERS Safety Report 7483915-X (Version None)
Quarter: 2011Q2

REPORT INFORMATION
  Report Type: 
  Country: None (occurrence: None)
  Receive Date: 20110517
  Receipt Date: 20110509
  Transmission Date: 20111010
  Serious: Yes (Hospitalization)
  Sender: FDA-Public Use
  Company Number: US-US-EMD SERONO, INC.-7047142

PATIENT
  Sex: Female
  Weight: 109 kg

DRUGS (4)
  1. REBIF [Suspect]
     Indication: MULTIPLE SCLEROSIS
     Route: 058
     Dates: start: 20101220
  2. HYDROCHLOROTHIAZIDE [Concomitant]
     Indication: HYPERTENSION
     Dates: end: 20110301
  3. STEROIDS [Concomitant]
     Indication: MULTIPLE SCLEROSIS
  4. INSULIN [Concomitant]
     Indication: DRUG THERAPY

REACTIONS (4)
  - PERICARDIAL EFFUSION [None]
  - DYSPEPSIA [None]
  - ACUTE MYOCARDIAL INFARCTION [None]
  - CORONARY ARTERY OCCLUSION [None]
